FAERS Safety Report 22098446 (Version 1)
Quarter: 2023Q1

REPORT INFORMATION
  Report Type: Spontaneous
  Country: US (occurrence: None)
  Receive Date: 20230314
  Receipt Date: 20230314
  Transmission Date: 20230418
  Serious: Yes (Other)
  Sender: FDA-Public Use
  Company Number: None

PATIENT
  Sex: Female

DRUGS (2)
  1. LANSOPRAZOLE [Suspect]
     Active Substance: LANSOPRAZOLE
     Indication: Gastrooesophageal reflux disease
     Dosage: 1 CAPSULE DAILY ORAL
     Route: 048
     Dates: start: 20211214
  2. LANSOPRAZOLE [Suspect]
     Active Substance: LANSOPRAZOLE
     Indication: Gastrooesophageal reflux disease
     Dosage: 1 CAPSULE DAILY ORAL
     Route: 048
     Dates: start: 20220615

REACTIONS (5)
  - Drug ineffective [None]
  - Abdominal pain upper [None]
  - Gastrooesophageal reflux disease [None]
  - Throat irritation [None]
  - Pharyngeal swelling [None]

NARRATIVE: CASE EVENT DATE: 20211225
